FAERS Safety Report 23228002 (Version 1)
Quarter: 2023Q4

REPORT INFORMATION
  Report Type: Report from Study
  Country: CN (occurrence: CN)
  Receive Date: 20231125
  Receipt Date: 20231125
  Transmission Date: 20240110
  Serious: Yes (Life-Threatening, Hospitalization)
  Sender: FDA-Public Use
  Company Number: CN-ABBVIE-5511055

PATIENT

DRUGS (1)
  1. BOTOX [Suspect]
     Active Substance: ONABOTULINUMTOXINA
     Indication: Injection
     Dosage: TIME INTERVAL: AS NECESSARY: 200 UNIT
     Route: 065

REACTIONS (2)
  - Toxicity to various agents [Unknown]
  - Febrile infection [Unknown]
